FAERS Safety Report 7013825-3 (Version None)
Quarter: 2010Q3

REPORT INFORMATION
  Report Type: 
  Country: None (occurrence: None)
  Receive Date: 20100924
  Receipt Date: 20100908
  Transmission Date: 20110219
  Serious: No
  Sender: FDA-Public Use
  Company Number: US-BAYER-201033095NA

PATIENT
  Age: 44 Year
  Sex: Male
  Weight: 150 kg

DRUGS (2)
  1. MAGNEVIST [Suspect]
     Indication: NUCLEAR MAGNETIC RESONANCE IMAGING
     Dosage: AS USED: 30 ML
     Route: 042
     Dates: start: 20100907, end: 20100907
  2. MAGNEVIST [Suspect]
     Dates: start: 20100526, end: 20100526

REACTIONS (3)
  - PRURITUS [None]
  - RASH [None]
  - THROAT IRRITATION [None]
